FAERS Safety Report 5159559-1 (Version None)
Quarter: 2006Q4

REPORT INFORMATION
  Report Type: 
  Country: None (occurrence: None)
  Receive Date: 20061129
  Receipt Date: 20061018
  Transmission Date: 20070319
  Serious: Yes (Disabling, Congenital Anomaly)
  Sender: FDA-Public Use
  Company Number: 2006CG01694

PATIENT
  Sex: Female
  Weight: 2.3 kg

DRUGS (4)
  1. OMEPRAZOLE [Suspect]
     Route: 064
     Dates: end: 20060101
  2. CORTANCYL [Suspect]
     Route: 064
     Dates: end: 20060101
  3. IMUREL [Suspect]
     Route: 064
     Dates: end: 20060101
  4. KALEORID LP [Suspect]
     Route: 064
     Dates: end: 20060101

REACTIONS (5)
  - AORTIC DISORDER [None]
  - CONGENITAL ANOMALY [None]
  - DRUG EXPOSURE DURING PREGNANCY [None]
  - SOLITARY KIDNEY [None]
  - VENTRICULAR SEPTAL DEFECT [None]
